FAERS Safety Report 9549967 (Version 1)
Quarter: 2013Q3

REPORT INFORMATION
  Report Type: Spontaneous
  Country: US (occurrence: US)
  Receive Date: 20130924
  Receipt Date: 20130924
  Transmission Date: 20140515
  Serious: No
  Sender: FDA-Public Use
  Company Number: US-009507513-1301USA003228

PATIENT
  Sex: Female

DRUGS (7)
  1. SINGULAIR [Suspect]
  2. LEVOTHYROXINE SODIUM [Suspect]
  3. ALBUTEROL SULFATE [Suspect]
  4. AMOXICILLIN [Suspect]
  5. PREDNISOLONE [Suspect]
     Dosage: 5 MG, QD
  6. CROMOLYN SODIUM [Suspect]
  7. REPROTEROL HYDROCHLORIDE [Suspect]

REACTIONS (1)
  - Exposure during pregnancy [Recovered/Resolved]
